FAERS Safety Report 7887577-9 (Version None)
Quarter: 2011Q4

REPORT INFORMATION
  Report Type: 
  Country: None (occurrence: None)
  Receive Date: 20111103
  Receipt Date: 20111025
  Transmission Date: 20120403
  Serious: No
  Sender: FDA-Public Use
  Company Number: US-BIOGENIDEC-2011BI032418

PATIENT
  Sex: Male

DRUGS (2)
  1. AVONEX [Concomitant]
     Indication: MULTIPLE SCLEROSIS
     Route: 030
  2. TYSABRI [Suspect]
     Indication: MULTIPLE SCLEROSIS
     Route: 042
     Dates: start: 20110126

REACTIONS (8)
  - WHITE BLOOD CELL COUNT INCREASED [None]
  - NEUROPATHY PERIPHERAL [None]
  - MUSCULOSKELETAL DISORDER [None]
  - GAIT DISTURBANCE [None]
  - ARTHRALGIA [None]
  - MUSCLE ATROPHY [None]
  - PAIN IN EXTREMITY [None]
  - BONE DEFORMITY [None]
